FAERS Safety Report 11716233 (Version 2)
Quarter: 2015Q4

REPORT INFORMATION
  Report Type: Spontaneous
  Country: US (occurrence: US)
  Receive Date: 20151104
  Receipt Date: 20151110
  Transmission Date: 20160304
  Serious: No
  Sender: FDA-Public Use
  Company Number: US-ELI_LILLY_AND_COMPANY-US201101001734

PATIENT
  Age: 63 Year
  Sex: Female

DRUGS (6)
  1. FORTEO [Suspect]
     Active Substance: TERIPARATIDE
     Dosage: 20 UG, QD
  2. ANALGESICS [Concomitant]
     Active Substance: UNSPECIFIED INGREDIENT
     Indication: PAIN
  3. PREDNISONE. [Concomitant]
     Active Substance: PREDNISONE
  4. FORTEO [Suspect]
     Active Substance: TERIPARATIDE
     Indication: OSTEOPOROSIS
     Dosage: 20 UG, DAILY (1/D)
     Dates: start: 201007
  5. FORTEO [Suspect]
     Active Substance: TERIPARATIDE
     Dosage: 20 UG, QD
  6. FORTEO [Suspect]
     Active Substance: TERIPARATIDE
     Dosage: 20 UG, QD

REACTIONS (16)
  - Nausea [Unknown]
  - Nasopharyngitis [Unknown]
  - Rhinorrhoea [Unknown]
  - Musculoskeletal disorder [Unknown]
  - Sneezing [Unknown]
  - Eating disorder [Unknown]
  - Weight decreased [Unknown]
  - Sleep disorder due to a general medical condition [Unknown]
  - Bone pain [Unknown]
  - Rheumatic disorder [Unknown]
  - Arthralgia [Unknown]
  - Injection site pain [Unknown]
  - Decreased appetite [Unknown]
  - Crying [Unknown]
  - Pain [Recovering/Resolving]
  - Limb discomfort [Unknown]

NARRATIVE: CASE EVENT DATE: 20110105
